FAERS Safety Report 23035069 (Version 1)
Quarter: 2023Q4

REPORT INFORMATION
  Report Type: Spontaneous
  Country: US (occurrence: US)
  Receive Date: 20231005
  Receipt Date: 20231005
  Transmission Date: 20240110
  Serious: Yes (Other)
  Sender: FDA-Public Use
  Company Number: US-AMGEN-USASP2023173191

PATIENT

DRUGS (3)
  1. XGEVA [Suspect]
     Active Substance: DENOSUMAB
     Indication: Product used for unknown indication
     Dosage: UNK
     Route: 065
  2. DEXAMETHASONE [Concomitant]
     Active Substance: DEXAMETHASONE
  3. LETROZOLE [Concomitant]
     Active Substance: LETROZOLE

REACTIONS (6)
  - Ileus paralytic [Unknown]
  - Haemorrhage [Unknown]
  - Injection site pain [Recovered/Resolved]
  - Appetite disorder [Unknown]
  - Hepatic enzyme increased [Unknown]
  - Bone pain [Unknown]
